FAERS Safety Report 22915265 (Version 2)
Quarter: 2023Q4

REPORT INFORMATION
  Report Type: Report from Study
  Country: US (occurrence: US)
  Receive Date: 20230907
  Receipt Date: 20231016
  Transmission Date: 20240110
  Serious: Yes (Hospitalization)
  Sender: FDA-Public Use
  Company Number: US-NOVITIUMPHARMA-2023USNVP01577

PATIENT
  Age: 6 Month
  Sex: Female
  Weight: 13.2 kg

DRUGS (6)
  1. CARGLUMIC ACID [Suspect]
     Active Substance: CARGLUMIC ACID
     Indication: Propionic acidaemia
     Dosage: 2 TABLETS
     Dates: start: 20230609
  2. CARGLUMIC ACID [Suspect]
     Active Substance: CARGLUMIC ACID
     Dosage: 2.5 TABLETS
     Route: 048
     Dates: start: 20230927
  3. CARGLUMIC ACID [Suspect]
     Active Substance: CARGLUMIC ACID
     Dosage: 1.5 TABLETS
     Dates: start: 20230406
  4. LEVOCARNITINE [Concomitant]
     Active Substance: LEVOCARNITINE
     Indication: Product used for unknown indication
  5. BIOTIN [Concomitant]
     Active Substance: BIOTIN
     Indication: Product used for unknown indication
  6. OMEPRAZOLE [Concomitant]
     Active Substance: OMEPRAZOLE
     Indication: Product used for unknown indication

REACTIONS (2)
  - Drug ineffective [Unknown]
  - Vomiting [Unknown]

NARRATIVE: CASE EVENT DATE: 20230930
